FAERS Safety Report 16558377 (Version 1)
Quarter: 2019Q3

REPORT INFORMATION
  Report Type: Spontaneous
  Country: CA (occurrence: CA)
  Receive Date: 20190711
  Receipt Date: 20190711
  Transmission Date: 20191004
  Serious: Yes (Hospitalization, Other)
  Sender: FDA-Public Use
  Company Number: CA-AUROBINDO-AUR-APL-2019-038673

PATIENT

DRUGS (1)
  1. VENLAFAXINE [Suspect]
     Active Substance: VENLAFAXINE HYDROCHLORIDE
     Indication: ANTIDEPRESSANT THERAPY
     Dosage: 75 MILLIGRAM, ONCE A DAY
     Route: 064

REACTIONS (12)
  - Selective eating disorder [Recovered/Resolved]
  - Drug withdrawal syndrome neonatal [Recovered/Resolved]
  - Agitation neonatal [Recovered/Resolved]
  - Hypertonia neonatal [Recovered/Resolved]
  - Diarrhoea neonatal [Recovered/Resolved]
  - Irritability [Recovered/Resolved]
  - Muscle rigidity [Recovered/Resolved]
  - Foetal exposure during pregnancy [Recovered/Resolved]
  - Infantile vomiting [Recovered/Resolved]
  - Neonatal tachypnoea [Recovered/Resolved]
  - Neonatal disorder [Recovered/Resolved]
  - Tremor neonatal [Recovered/Resolved]
